FAERS Safety Report 7378010-4 (Version None)
Quarter: 2011Q1

REPORT INFORMATION
  Report Type: 
  Country: None (occurrence: None)
  Receive Date: 20110317
  Receipt Date: 20110303
  Transmission Date: 20110831
  Serious: Yes (Death)
  Sender: FDA-Public Use
  Company Number: JPI-P-014099

PATIENT
  Sex: Female

DRUGS (2)
  1. XYREM [Suspect]
     Indication: INSOMNIA
     Dosage: 5 GM (2.5 GM,2 IN 1 D),ORAL ; ORAL ; 9 GM (4.5 GM,2 IN 1 D),ORAL
     Route: 048
     Dates: start: 20050309
  2. XYREM [Suspect]
     Indication: INSOMNIA
     Dosage: 5 GM (2.5 GM,2 IN 1 D),ORAL ; ORAL ; 9 GM (4.5 GM,2 IN 1 D),ORAL
     Route: 048
     Dates: start: 20051130

REACTIONS (7)
  - TEMPOROMANDIBULAR JOINT SYNDROME [None]
  - TARSAL TUNNEL SYNDROME [None]
  - ARTHROPATHY [None]
  - HYPERTONIC BLADDER [None]
  - BLADDER DISORDER [None]
  - THERAPEUTIC RESPONSE DECREASED [None]
  - POOR QUALITY SLEEP [None]
